FAERS Safety Report 12995108 (Version 1)
Quarter: 2016Q4

REPORT INFORMATION
  Report Type: Spontaneous
  Country: US (occurrence: US)
  Receive Date: 20161202
  Receipt Date: 20161202
  Transmission Date: 20170207
  Serious: Yes (Hospitalization, Disabling, Other)
  Sender: FDA-Public Use
  Company Number: US-PERRIGO-16US022186

PATIENT
  Age: 6 Year
  Sex: Female

DRUGS (7)
  1. ACETAMINOPHEN. [Concomitant]
     Active Substance: ACETAMINOPHEN
     Indication: VIRAL INFECTION
  2. IBUPROFEN. [Suspect]
     Active Substance: IBUPROFEN
     Indication: PYREXIA
     Dosage: UNKNOWN, ONCE ON THE EVENING OF 01NOV2014 AND ONCE ON THE MORNING OF 02NOV2014
     Route: 048
     Dates: start: 20141101, end: 20141102
  3. CHILDRENS TYLENOL [Suspect]
     Active Substance: ACETAMINOPHEN
     Indication: PYREXIA
     Dosage: UNKNOWN, SINGLE
     Route: 048
     Dates: start: 20141103, end: 20141103
  4. CEFDINIR. [Concomitant]
     Active Substance: CEFDINIR
     Indication: INFECTION
     Dosage: 300 MG, BID
     Route: 048
     Dates: start: 20141102
  5. ACETAMINOPHEN. [Concomitant]
     Active Substance: ACETAMINOPHEN
     Indication: PYREXIA
     Dosage: UNK, SINGLE
     Route: 065
     Dates: start: 20141102, end: 20141102
  6. PEDIACARE CHILDRENS PLUS MULTISYMPTOM COLD [Suspect]
     Active Substance: ACETAMINOPHEN\CHLORPHENIRAMINE MALEATE\DEXTROMETHORPHAN HYDROBROMIDE
     Indication: NASOPHARYNGITIS
     Dosage: UNKNOWN, EVERY 4 TO 6 HOURS
     Route: 048
     Dates: start: 20141018, end: 20141019
  7. CHILDRENS MOTRIN [Suspect]
     Active Substance: IBUPROFEN
     Indication: PYREXIA
     Dosage: UNKNOWN, ONCE ON THE EVENING OF 02NOV2014AND THE MORNING OF 03NOV2014
     Route: 048
     Dates: start: 20141102, end: 20141103

REACTIONS (15)
  - Toxic epidermal necrolysis [Recovering/Resolving]
  - Conjunctival scar [Unknown]
  - Urinary tract infection [Unknown]
  - Balance disorder [Unknown]
  - Asthenia [Unknown]
  - Trichiasis [Unknown]
  - Hyperglycaemia [Unknown]
  - Staphylococcal bacteraemia [Unknown]
  - Dry eye [Unknown]
  - Respiratory failure [Unknown]
  - Pneumonia staphylococcal [Unknown]
  - Extraskeletal ossification [Unknown]
  - Conjunctivitis [Unknown]
  - Ulcerative keratitis [Unknown]
  - Scar [Unknown]

NARRATIVE: CASE EVENT DATE: 201411
